FAERS Safety Report 23487821 (Version 3)
Quarter: 2024Q2

REPORT INFORMATION
  Report Type: Spontaneous
  Country: CA (occurrence: CA)
  Receive Date: 20240206
  Receipt Date: 20240624
  Transmission Date: 20240716
  Serious: Yes (Other)
  Sender: FDA-Public Use
  Company Number: CA-BAXTER-2023BAX020096

PATIENT
  Age: 29 Year
  Sex: Female

DRUGS (40)
  1. ONDANSETRON [Suspect]
     Active Substance: ONDANSETRON
     Indication: Hyperemesis gravidarum
     Dosage: (DOSAGE FORM: NOT SPECIFIED) AT AN UNSPECIFIED DOSE AND FREQUENCY (ONDANSETRON HYDROCHLORIDE)
     Route: 065
  2. FUROSEMIDE [Suspect]
     Active Substance: FUROSEMIDE
     Indication: Pulmonary oedema
     Dosage: (DOSAGE FORM: NOT SPECIFIED)10 MILLIGRAMS (MG) 2 EVERY 1 DAY
     Route: 042
  3. FUROSEMIDE [Suspect]
     Active Substance: FUROSEMIDE
     Indication: Pulmonary hypertension
     Dosage: DOSAGE FORM: INJECTION)10 MILLIGRAMS (MG) 2 EVERY 1 DAY
     Route: 042
  4. FUROSEMIDE [Suspect]
     Active Substance: FUROSEMIDE
     Dosage: (DOSAGE FORM: NOT SPECIFIED) AT AN UNSPECIFIED DOSE AND FREQUENCY
     Route: 065
  5. FUROSEMIDE [Suspect]
     Active Substance: FUROSEMIDE
     Dosage: (DOSAGE FORM: INJECTION) AT AN UNSPECIFIED DOSE AND FREQUENCY
     Route: 065
  6. FUROSEMIDE [Suspect]
     Active Substance: FUROSEMIDE
     Dosage: (DOSAGE FORM: SOLUTION INJECTION) AT AN UNSPECIFIED DOSE AND FREQUENCY
     Route: 065
  7. ASPIRIN [Suspect]
     Active Substance: ASPIRIN
     Indication: Prophylaxis
     Dosage: (DOSAGE FORM: NOT SPECIFIED) 162 MILLIGRAMS (MG) 1 EVERY 1 DAY
     Route: 048
  8. ASPIRIN [Suspect]
     Active Substance: ASPIRIN
     Indication: Gynaecological disorder prophylaxis
     Dosage: (DOSAGE FORM: NOT SPECIFIED) 162.0 MILLIGRAM AT AN UNSPECIFIED FREQUENCY
     Route: 048
  9. ASPIRIN [Suspect]
     Active Substance: ASPIRIN
     Indication: Pre-eclampsia
     Dosage: 162 MILLIGRAMS (MG) 1 EVERY 1 DAY (DOSAGE FORM: NOT SPECIFIED)
     Route: 048
  10. ASPIRIN [Suspect]
     Active Substance: ASPIRIN
     Indication: Prophylaxis
  11. BETAMETHASONE [Suspect]
     Active Substance: BETAMETHASONE\BETAMETHASONE DIPROPIONATE
     Indication: Pre-eclampsia
     Dosage: AT AN UNSPECIFIED DOSE AND FREQUENCY
     Route: 065
  12. BETAMETHASONE [Suspect]
     Active Substance: BETAMETHASONE\BETAMETHASONE DIPROPIONATE
     Indication: Maternal therapy to enhance foetal lung maturity
  13. GABAPENTIN [Suspect]
     Active Substance: GABAPENTIN
     Indication: Vomiting
     Dosage: (DOSAGE FORM: NOT SPECIFIED) 100 MILLIGRAMS (MG) 1 EVERY 1 DAY
     Route: 048
  14. GABAPENTIN [Suspect]
     Active Substance: GABAPENTIN
     Indication: Hyperemesis gravidarum
  15. HEPARIN [Suspect]
     Active Substance: HEPARIN SODIUM
     Indication: Thrombosis prophylaxis
     Dosage: 5000 IU (INTERNATIONAL UNIT) 2 EVERY 1 DAY
     Route: 058
  16. HEPARIN [Suspect]
     Active Substance: HEPARIN SODIUM
     Dosage: 2 EVERY 1 DAY AT AN UNSPECIFIED DOSE
     Route: 058
  17. HEPARIN [Suspect]
     Active Substance: HEPARIN SODIUM
     Indication: Thrombosis prophylaxis
     Dosage: 5000 IU (INTERNATIONAL UNIT) 2 EVERY 1 DAY
     Route: 058
  18. HEPARIN SODIUM [Suspect]
     Active Substance: HEPARIN SODIUM
     Indication: Thrombosis prophylaxis
     Dosage: (DOSAGE FORM: SOLUTION INTRAVENOUS) 2 EVERY 1 DAYS AT AN UNSPECIFIED DOSE
     Route: 058
  19. INSULIN NOS [Suspect]
     Active Substance: INSULIN NOS
     Indication: Type 1 diabetes mellitus
     Dosage: AT AN UNSPECIFIED DOSE AND FREQUENCY, (DOSAGE FORM: GLOBULES ORAL)
     Route: 065
  20. INSULIN NOS [Suspect]
     Active Substance: INSULIN NOS
     Dosage: AT AN UNSPECIFIED DOSE AND FREQUENCY, (DOSAGE FORM: GLOBULES ORAL)
     Route: 048
  21. INSULIN NOS [Suspect]
     Active Substance: INSULIN NOS
     Dosage: AT AN UNSPECIFIED DOSE AND FREQUENCY
     Route: 065
  22. LABETALOL [Suspect]
     Active Substance: LABETALOL\LABETALOL HYDROCHLORIDE
     Indication: Blood pressure abnormal
     Dosage: AT AN UNSPECIFIED DOSE AND FREQUENCY
     Route: 065
  23. LABETALOL [Suspect]
     Active Substance: LABETALOL\LABETALOL HYDROCHLORIDE
     Indication: Pulmonary hypertension
  24. LABETALOL [Suspect]
     Active Substance: LABETALOL\LABETALOL HYDROCHLORIDE
     Indication: Blood pressure management
  25. LABETALOL HYDROCHLORIDE [Suspect]
     Active Substance: LABETALOL\LABETALOL HYDROCHLORIDE
     Indication: Pulmonary hypertension
     Dosage: AT AN UNSPECIFIED DOSE AND FREQUENCY
     Route: 065
  26. LABETALOL HYDROCHLORIDE [Suspect]
     Active Substance: LABETALOL\LABETALOL HYDROCHLORIDE
     Indication: Blood pressure management
  27. METOCLOPRAMIDE [Suspect]
     Active Substance: METOCLOPRAMIDE
     Indication: Hyperemesis gravidarum
     Dosage: AT AN UNSPECIFIED DOSE AND FREQUENCY
     Route: 065
  28. MIRTAZAPINE [Suspect]
     Active Substance: MIRTAZAPINE
     Indication: Vomiting
     Dosage: 15 MILLIGRAMS (MG) 1 EVERY 1 DAY
     Route: 048
  29. MIRTAZAPINE [Suspect]
     Active Substance: MIRTAZAPINE
     Indication: Hyperemesis gravidarum
     Dosage: 15.0 MILLIGRAM AT AN UNSPECIFIED FREQUENCY
     Route: 048
  30. MIRTAZAPINE [Suspect]
     Active Substance: MIRTAZAPINE
     Indication: Vomiting
     Dosage: (NOVO- MIRTAZAPINE TABLETS) AT AN UNSPECIFIED DOSE AND FREQUENCY
     Route: 065
  31. MIRTAZAPINE [Suspect]
     Active Substance: MIRTAZAPINE
     Indication: Hyperemesis gravidarum
     Dosage: (NOVO- MIRTAZAPINE TABLETS) 15 MILLIGRAMS (MG) 1 EVERY 1 DAY
     Route: 048
  32. NIFEDIPINE [Suspect]
     Active Substance: NIFEDIPINE
     Indication: Blood pressure increased
     Dosage: 30 MILLIGRAMS (MG) 1 EVERY 1 DAY (DOSAGE FORM: NOT SPECIFIED)
     Route: 048
  33. NIFEDIPINE [Suspect]
     Active Substance: NIFEDIPINE
     Indication: Pulmonary hypertension
  34. NIFEDIPINE [Suspect]
     Active Substance: NIFEDIPINE
     Indication: Blood pressure abnormal
     Dosage: 30 MILLIGRAMS (MG) 1 EVERY 1 DAY (DOSAGE FORM: TABLET (EXTENDED-RELEASE)
     Route: 048
  35. NIFEDIPINE [Suspect]
     Active Substance: NIFEDIPINE
     Indication: Pulmonary hypertension
     Dosage: (DOSAGE FORM: TABLET (EXTENDED-RELEASE) AT AN UNSPECIFIED DOSE AND FREQUENCY
     Route: 065
  36. NIFEDIPINE [Suspect]
     Active Substance: NIFEDIPINE
     Indication: Blood pressure management
  37. NIFEDIPINE [Suspect]
     Active Substance: NIFEDIPINE
     Indication: Pulmonary hypertension
     Dosage: AT AN UNSPECIFIED DOSE AND FREQUENCY
     Route: 065
  38. NIFEDIPINE [Suspect]
     Active Substance: NIFEDIPINE
     Indication: Blood pressure management
  39. OXYTOCIN [Suspect]
     Active Substance: OXYTOCIN
     Indication: Prophylaxis
     Dosage: (DOSAGE FORM: NOT SPECIFIED) AT AN UNSPECIFIED DOSE AND FREQUENCY
     Route: 065
  40. INSULIN NOS [Suspect]
     Active Substance: INSULIN NOS
     Indication: Type 1 diabetes mellitus
     Dosage: AT AN UNSPECIFIED DOSE AND FREQUENCY
     Route: 065

REACTIONS (8)
  - Drug ineffective [Recovered/Resolved]
  - Live birth [Recovered/Resolved]
  - Premature delivery [Recovered/Resolved]
  - Therapy non-responder [Recovered/Resolved]
  - Product use in unapproved indication [Recovered/Resolved]
  - Off label use [Unknown]
  - Contraindicated product administered [Unknown]
  - Maternal exposure during pregnancy [Recovered/Resolved]
